FAERS Safety Report 9999986 (Version 4)
Quarter: 2014Q2

REPORT INFORMATION
  Report Type: Spontaneous
  Country: FR (occurrence: FR)
  Receive Date: 20140312
  Receipt Date: 20140610
  Transmission Date: 20141212
  Serious: Yes (Other)
  Sender: FDA-Public Use
  Company Number: PHHY2014FR028752

PATIENT
  Age: 19 Month
  Sex: Female
  Weight: 10 kg

DRUGS (1)
  1. CEFPODOXIME SANDOZ [Suspect]

REACTIONS (3)
  - Intentional product misuse [Unknown]
  - Overdose [Unknown]
  - Drug ineffective [Unknown]
